FAERS Safety Report 12135869 (Version 1)
Quarter: 2016Q1

REPORT INFORMATION
  Report Type: Spontaneous
  Country: US (occurrence: US)
  Receive Date: 20160302
  Receipt Date: 20160302
  Transmission Date: 20160526
  Serious: Yes (Other)
  Sender: FDA-Public Use
  Company Number: US-ROCHE-1718672

PATIENT
  Sex: Male

DRUGS (1)
  1. TAMIFLU [Suspect]
     Active Substance: OSELTAMIVIR PHOSPHATE
     Indication: INFLUENZA
     Dosage: FOR 3 DAYS
     Route: 065
     Dates: end: 20160227

REACTIONS (7)
  - Crying [Recovering/Resolving]
  - Pyrexia [Recovering/Resolving]
  - Malaise [Recovering/Resolving]
  - Restlessness [Recovering/Resolving]
  - Flushing [Recovering/Resolving]
  - Insomnia [Recovering/Resolving]
  - Mental disorder [Recovering/Resolving]
